FAERS Safety Report 7883592-X (Version None)
Quarter: 2011Q4

REPORT INFORMATION
  Report Type: 
  Country: None (occurrence: None)
  Receive Date: 20111102
  Receipt Date: 20111027
  Transmission Date: 20120403
  Serious: Yes (Death, Life-Threatening, Hospitalization, Other)
  Sender: FDA-Public Use
  Company Number: GB-TEVA-297463ISR

PATIENT
  Age: 85 Year
  Sex: Female
  Weight: 42 kg

DRUGS (9)
  1. ERYTHROMYCIN [Suspect]
     Indication: LOWER RESPIRATORY TRACT INFECTION
     Dosage: 2000 MILLIGRAM;
     Route: 048
     Dates: start: 20110628, end: 20110629
  2. ACETAMINOPHEN [Concomitant]
  3. DOXYCYCLINE [Concomitant]
  4. LEVOTHYROXINE SODIUM [Concomitant]
  5. PERINDOPRIL ERBUMINE [Concomitant]
  6. CLARITHROMYCIN [Suspect]
     Indication: LOWER RESPIRATORY TRACT INFECTION
     Route: 042
     Dates: start: 20110629, end: 20110629
  7. OMEPRAZOLE [Concomitant]
  8. GAVISCON [Concomitant]
  9. CITALOPRAM HYDROBROMIDE [Concomitant]

REACTIONS (4)
  - MOUTH ULCERATION [None]
  - STEVENS-JOHNSON SYNDROME [None]
  - SKIN EXFOLIATION [None]
  - RASH MACULO-PAPULAR [None]
